FAERS Safety Report 4359415-2 (Version None)
Quarter: 2004Q2

REPORT INFORMATION
  Report Type: 
  Country: None (occurrence: None)
  Receive Date: 20040518
  Receipt Date: 20040512
  Transmission Date: 20050107
  Serious: Yes (Death)
  Sender: FDA-Public Use
  Company Number: 200411948FR

PATIENT
  Age: 71 Year
  Sex: Male

DRUGS (3)
  1. KETEK [Suspect]
     Indication: BRONCHITIS
     Route: 048
     Dates: start: 20040507, end: 20040507
  2. MAXILASE [Concomitant]
     Dates: start: 20040507, end: 20040508
  3. SILOMAT [Concomitant]
     Dates: start: 20040507, end: 20040508

REACTIONS (7)
  - ABDOMINAL PAIN UPPER [None]
  - AORTIC ANEURYSM RUPTURE [None]
  - FALL [None]
  - FLANK PAIN [None]
  - MALAISE [None]
  - NAUSEA [None]
  - PULMONARY EMBOLISM [None]
